FAERS Safety Report 6379832-9 (Version None)
Quarter: 2009Q3

REPORT INFORMATION
  Report Type: 
  Country: None (occurrence: None)
  Receive Date: 20090918
  Receipt Date: 20090824
  Transmission Date: 20100115
  Serious: Yes (Other)
  Sender: FDA-Public Use
  Company Number: ADR-237-036

PATIENT
  Sex: 0

DRUGS (1)
  1. AMLODIPINE BESYLATE [Suspect]
     Dosage: ORAL, 2.5 MG
     Route: 048

REACTIONS (2)
  - CHOKING [None]
  - THROAT TIGHTNESS [None]
